FAERS Safety Report 20677930 (Version 2)
Quarter: 2022Q2

REPORT INFORMATION
  Report Type: Spontaneous
  Country: JP (occurrence: JP)
  Receive Date: 20220406
  Receipt Date: 20220412
  Transmission Date: 20220721
  Serious: Yes (Hospitalization)
  Sender: FDA-Public Use
  Company Number: JP-NOVARTISPH-NVSJ2022JP005428

PATIENT
  Age: 80 Year
  Sex: Male

DRUGS (3)
  1. ELTROMBOPAG [Suspect]
     Active Substance: ELTROMBOPAG
     Indication: Immune thrombocytopenia
     Dosage: 50 MG
     Route: 048
  2. PREDNISOLONE [Concomitant]
     Active Substance: PREDNISOLONE
     Indication: Immune thrombocytopenia
     Dosage: 20 MG
     Route: 048
  3. PREDNISOLONE [Concomitant]
     Active Substance: PREDNISOLONE
     Dosage: 10 MG
     Route: 048

REACTIONS (9)
  - Portosplenomesenteric venous thrombosis [Recovering/Resolving]
  - Gastrointestinal necrosis [Unknown]
  - Abdominal pain [Unknown]
  - Vomiting [Unknown]
  - Gastrointestinal oedema [Unknown]
  - Mesenteritis [Unknown]
  - Haemorrhagic ascites [Unknown]
  - Haemorrhagic infarction [Unknown]
  - Small intestinal haemorrhage [Unknown]
